FAERS Safety Report 7233491-1 (Version None)
Quarter: 2011Q1

REPORT INFORMATION
  Report Type: 
  Country: None (occurrence: None)
  Receive Date: 20110119
  Receipt Date: 20110106
  Transmission Date: 20110831
  Serious: No
  Sender: FDA-Public Use
  Company Number: US-ELI_LILLY_AND_COMPANY-US201101001545

PATIENT
  Sex: Female

DRUGS (2)
  1. CYMBALTA [Suspect]
     Indication: PAIN
     Dosage: 30 MG, UNK
  2. CYMBALTA [Suspect]
     Dosage: 30 MG, 3/D

REACTIONS (5)
  - OFF LABEL USE [None]
  - ABDOMINAL DISCOMFORT [None]
  - HEPATIC ENZYME INCREASED [None]
  - OCULAR ICTERUS [None]
  - INTENTIONAL DRUG MISUSE [None]
